FAERS Safety Report 5841721-3 (Version None)
Quarter: 2008Q3

REPORT INFORMATION
  Report Type: 
  Country: None (occurrence: None)
  Receive Date: 20080812
  Receipt Date: 20080808
  Transmission Date: 20090109
  Serious: Yes (Hospitalization)
  Sender: FDA-Public Use
  Company Number: US-CELGENEUS-163-21880-08071226

PATIENT
  Age: 52 Year
  Sex: Male
  Weight: 75 kg

DRUGS (4)
  1. REVLIMID [Suspect]
     Indication: MULTIPLE MYELOMA
     Route: 048
     Dates: start: 20050216, end: 20050315
  2. DEXAMETHASONE TAB [Suspect]
     Indication: MULTIPLE MYELOMA
     Route: 048
     Dates: start: 20050216, end: 20050219
  3. DEXAMETHASONE TAB [Suspect]
     Route: 048
     Dates: start: 20050201, end: 20050307
  4. DEXAMETHASONE TAB [Suspect]
     Route: 048
     Dates: start: 20050323

REACTIONS (2)
  - HYPERGLYCAEMIA [None]
  - HYPONATRAEMIA [None]
